FAERS Safety Report 9096698 (Version 2)
Quarter: 2013Q2

REPORT INFORMATION
  Report Type: Spontaneous
  Country: CA (occurrence: CA)
  Receive Date: 20130211
  Receipt Date: 20130417
  Transmission Date: 20140414
  Serious: Yes (Life-Threatening)
  Sender: FDA-Public Use
  Company Number: CA-ELI_LILLY_AND_COMPANY-CA201302000493

PATIENT
  Age: 55 Year
  Sex: Female
  Weight: 86 kg

DRUGS (7)
  1. CYMBALTA [Suspect]
     Indication: FIBROMYALGIA
     Dosage: 60 MG, QD
     Route: 048
     Dates: start: 20120717, end: 20120801
  2. IMOVANE [Concomitant]
  3. LORAZEPAM [Concomitant]
  4. METOPROLOL [Concomitant]
  5. MORPHINE [Concomitant]
  6. NEURONTIN [Concomitant]
  7. TYLENOL WITH CODEINE [Concomitant]

REACTIONS (1)
  - Depression suicidal [Recovered/Resolved]
